FAERS Safety Report 16003470 (Version 1)
Quarter: 2019Q1

REPORT INFORMATION
  Report Type: Spontaneous
  Country: AU (occurrence: AU)
  Receive Date: 20190226
  Receipt Date: 20190226
  Transmission Date: 20190418
  Serious: Yes (Other)
  Sender: FDA-Public Use
  Company Number: AU-009507513-1902AUS008077

PATIENT
  Age: 65 Year
  Sex: Female

DRUGS (2)
  1. NOVASONE [Suspect]
     Active Substance: MOMETASONE FUROATE
     Indication: PSORIASIS
     Dosage: UNK, QD
  2. NOVASONE [Suspect]
     Active Substance: MOMETASONE FUROATE
     Dosage: UNK, QD
     Dates: end: 20180303

REACTIONS (2)
  - Rash papular [Recovering/Resolving]
  - Pruritus generalised [Recovering/Resolving]

NARRATIVE: CASE EVENT DATE: 20180307
